FAERS Safety Report 11569632 (Version 1)
Quarter: 2015Q3

REPORT INFORMATION
  Report Type: Spontaneous
  Country: US (occurrence: None)
  Receive Date: 20150928
  Receipt Date: 20150928
  Transmission Date: 20151125
  Serious: Yes (Other)
  Sender: FDA-Public Use
  Company Number: None

PATIENT
  Age: 54 Year
  Sex: Female
  Weight: 88 kg

DRUGS (6)
  1. RANEXA [Suspect]
     Active Substance: RANOLAZINE
     Indication: CHEST PAIN
     Route: 048
  2. ACCEPT [Concomitant]
  3. CARVELIDOL [Concomitant]
  4. ACYCLOVIR. [Concomitant]
     Active Substance: ACYCLOVIR
  5. ALDACTONE [Concomitant]
     Active Substance: SPIRONOLACTONE
  6. RANEXA [Suspect]
     Active Substance: RANOLAZINE
     Indication: CARDIAC DISORDER
     Route: 048

REACTIONS (1)
  - Rash [None]

NARRATIVE: CASE EVENT DATE: 20150923
